FAERS Safety Report 21988283 (Version 1)
Quarter: 2023Q1

REPORT INFORMATION
  Report Type: Spontaneous
  Country: US (occurrence: US)
  Receive Date: 20230214
  Receipt Date: 20230214
  Transmission Date: 20230418
  Serious: Yes (Other)
  Sender: FDA-Public Use
  Company Number: US-ELI_LILLY_AND_COMPANY-US202302005008

PATIENT
  Age: 59 Year
  Sex: Male

DRUGS (3)
  1. RETEVMO [Suspect]
     Active Substance: SELPERCATINIB
     Indication: Medullary thyroid cancer
     Dosage: 80 MG, BID
     Route: 048
     Dates: start: 2020
  2. RETEVMO [Suspect]
     Active Substance: SELPERCATINIB
     Dosage: 80 MG, BID
     Route: 048
  3. LEVOTHYROXINE [Concomitant]
     Active Substance: LEVOTHYROXINE
     Indication: Hypothyroidism

REACTIONS (14)
  - Malignant neoplasm progression [Unknown]
  - Dry skin [Unknown]
  - Skin fissures [Unknown]
  - Candida infection [Unknown]
  - Oral disorder [Not Recovered/Not Resolved]
  - Erectile dysfunction [Unknown]
  - Anxiety [Unknown]
  - Gingival disorder [Recovered/Resolved]
  - Tongue discolouration [Recovered/Resolved]
  - Eructation [Unknown]
  - Gastrooesophageal reflux disease [Unknown]
  - Ear canal stenosis [Unknown]
  - Dry mouth [Unknown]
  - Hypertension [Unknown]

NARRATIVE: CASE EVENT DATE: 20200101
